FAERS Safety Report 16089109 (Version 1)
Quarter: 2019Q1

REPORT INFORMATION
  Report Type: Spontaneous
  Country: US (occurrence: US)
  Receive Date: 20190319
  Receipt Date: 20190319
  Transmission Date: 20190418
  Serious: Yes (Hospitalization, Other)
  Sender: FDA-Public Use
  Company Number: US-VALIDUS PHARMACEUTICALS LLC-US-2019VAL000159

PATIENT

DRUGS (13)
  1. FUROSEMIDE. [Suspect]
     Active Substance: FUROSEMIDE
     Indication: OEDEMA
     Dosage: UNK
     Route: 065
  2. FUROSEMIDE. [Suspect]
     Active Substance: FUROSEMIDE
     Indication: ORTHOPNOEA
  3. HYDRALAZINE [Suspect]
     Active Substance: HYDRALAZINE HYDROCHLORIDE
     Indication: ORTHOPNOEA
  4. DIGOXIN. [Suspect]
     Active Substance: DIGOXIN
     Indication: OEDEMA
     Dosage: UNK
     Route: 065
  5. DIGOXIN. [Suspect]
     Active Substance: DIGOXIN
     Indication: ORTHOPNOEA
  6. HEPARIN [Suspect]
     Active Substance: HEPARIN SODIUM
     Indication: OEDEMA
     Dosage: UNK
     Route: 065
  7. ISOSORBIDE DINITRATE. [Suspect]
     Active Substance: ISOSORBIDE DINITRATE
     Indication: ORTHOPNOEA
  8. CARVEDILOL. [Suspect]
     Active Substance: CARVEDILOL
     Indication: OEDEMA
     Dosage: UNK
     Route: 065
  9. CARVEDILOL. [Suspect]
     Active Substance: CARVEDILOL
     Indication: ORTHOPNOEA
  10. HEPARIN [Suspect]
     Active Substance: HEPARIN SODIUM
     Indication: ORTHOPNOEA
  11. METHAMPHETAMINE                    /00069101/ [Suspect]
     Active Substance: METHAMPHETAMINE
     Indication: PRODUCT USED FOR UNKNOWN INDICATION
     Dosage: UNK, QD
     Route: 065
  12. HYDRALAZINE [Suspect]
     Active Substance: HYDRALAZINE HYDROCHLORIDE
     Indication: OEDEMA
     Dosage: UNK
     Route: 065
  13. ISOSORBIDE DINITRATE. [Suspect]
     Active Substance: ISOSORBIDE DINITRATE
     Indication: OEDEMA
     Dosage: UNK
     Route: 065

REACTIONS (8)
  - Orthopnoea [Unknown]
  - Oedema [Unknown]
  - Exposure during pregnancy [Unknown]
  - Foetal disorder [Unknown]
  - Cardiac failure [Unknown]
  - Cardiomyopathy [Unknown]
  - Dyspnoea [Unknown]
  - Foetal growth restriction [Unknown]
